FAERS Safety Report 6094939-1 (Version None)
Quarter: 2009Q1

REPORT INFORMATION
  Report Type: 
  Country: None (occurrence: None)
  Receive Date: 20090227
  Receipt Date: 20090225
  Transmission Date: 20090719
  Serious: Yes (Other)
  Sender: FDA-Public Use
  Company Number: US-BRISTOL-MYERS SQUIBB COMPANY-14521272

PATIENT
  Age: 44 Year
  Sex: Male

DRUGS (1)
  1. BARACLUDE [Suspect]
     Dates: start: 20050701

REACTIONS (1)
  - DRUG RESISTANCE [None]
